FAERS Safety Report 8217620-9 (Version None)
Quarter: 2012Q1

REPORT INFORMATION
  Report Type: 
  Country: None (occurrence: None)
  Receive Date: 20120319
  Receipt Date: 20120319
  Transmission Date: 20120608
  Serious: Yes (Other)
  Sender: FDA-Public Use
  Company Number: None

PATIENT
  Age: 50 Year
  Sex: Male
  Weight: 99.336 kg

DRUGS (1)
  1. ALLOPURINOL [Suspect]
     Indication: GOUT
     Dosage: ONE A DAY
     Route: 048
     Dates: start: 20120119, end: 20120302

REACTIONS (4)
  - ABNORMAL DREAMS [None]
  - FEELING OF BODY TEMPERATURE CHANGE [None]
  - ASTHENIA [None]
  - RASH [None]
